FAERS Safety Report 4639190-4 (Version None)
Quarter: 2005Q2

REPORT INFORMATION
  Report Type: 
  Country: None (occurrence: None)
  Receive Date: 20050418
  Receipt Date: 20050407
  Transmission Date: 20051028
  Serious: Yes (Hospitalization)
  Sender: FDA-Public Use
  Company Number: 2005SE02082

PATIENT
  Age: 84 Year
  Sex: Male

DRUGS (13)
  1. SEROQUEL [Suspect]
     Indication: HALLUCINATION
     Dosage: 25 MG QD PO
     Route: 048
     Dates: start: 20050101, end: 20050203
  2. LASIX [Concomitant]
  3. MOVICOL [Concomitant]
  4. CITALOPRAM ALPHARMA [Concomitant]
  5. FOLACIN [Concomitant]
  6. ALVEDON [Concomitant]
  7. STESOLID [Concomitant]
  8. BETOLVEX [Concomitant]
  9. ASPIRIN [Concomitant]
  10. OXASCAND [Concomitant]
  11. ACETYLCYSTEINE ASTRAZENECA [Concomitant]
  12. MADOPARK [Concomitant]
  13. ZOPIKLON NM PHARMA [Concomitant]

REACTIONS (6)
  - ADVERSE DRUG REACTION [None]
  - ALANINE AMINOTRANSFERASE INCREASED [None]
  - ASPARTATE AMINOTRANSFERASE INCREASED [None]
  - BLOOD ALKALINE PHOSPHATASE INCREASED [None]
  - GAMMA-GLUTAMYLTRANSFERASE INCREASED [None]
  - JAUNDICE [None]
